FAERS Safety Report 4423607-4 (Version None)
Quarter: 2004Q3

REPORT INFORMATION
  Report Type: 
  Country: None (occurrence: None)
  Receive Date: 20040714
  Receipt Date: 20031003
  Transmission Date: 20050211
  Serious: No
  Sender: FDA-Public Use
  Company Number: 200318835US

PATIENT
  Age: 70 Year
  Sex: Male

DRUGS (7)
  1. TAXOTERE [Suspect]
     Indication: PROSTATE CANCER
     Dosage: QW
     Dates: start: 20030701
  2. ESTRAMUSTINE PHOSPHATE SODIUIM (EMCYT) [Concomitant]
  3. DEXAMETHASONE [Concomitant]
  4. PLAVIX [Concomitant]
  5. DIURETIC [Concomitant]
  6. ZOLOFT [Concomitant]
  7. PAIN KILLERS [Concomitant]

REACTIONS (3)
  - COGNITIVE DISORDER [None]
  - CONFUSIONAL STATE [None]
  - DISORIENTATION [None]
